FAERS Safety Report 12608614 (Version 2)
Quarter: 2017Q1

REPORT INFORMATION
  Report Type: Report from Study
  Country: JP (occurrence: JP)
  Receive Date: 20160729
  Receipt Date: 20170111
  Transmission Date: 20170428
  Serious: Yes (Death, Life-Threatening, Hospitalization)
  Sender: FDA-Public Use
  Company Number: JP-PFIZER INC-2015255035

PATIENT
  Age: 63 Year
  Sex: Female
  Weight: 42 kg

DRUGS (3)
  1. TOFACITINIB CITRATE [Suspect]
     Active Substance: TOFACITINIB CITRATE
     Indication: RHEUMATOID ARTHRITIS
     Dosage: 10 MG, DAILY
     Route: 048
     Dates: start: 20141003, end: 20150706
  2. PREDONINE [Concomitant]
     Active Substance: PREDNISOLONE
     Indication: RHEUMATOID ARTHRITIS
     Dosage: 5 MG, DAILY
     Route: 048
     Dates: end: 20150713
  3. RHEUMATREX [Concomitant]
     Active Substance: METHOTREXATE SODIUM
     Indication: RHEUMATOID ARTHRITIS
     Dosage: 2 MG, WEEKLY
     Route: 048
     Dates: end: 20150627

REACTIONS (4)
  - Pneumonia [Fatal]
  - Subarachnoid haemorrhage [Fatal]
  - Arthropathy [Unknown]
  - Brain death [Fatal]

NARRATIVE: CASE EVENT DATE: 20150713
